FAERS Safety Report 8814666 (Version 10)
Quarter: 2014Q1

REPORT INFORMATION
  Report Type: Spontaneous
  Country: US (occurrence: US)
  Receive Date: 20120928
  Receipt Date: 20140227
  Transmission Date: 20141002
  Serious: Yes (Hospitalization, Other)
  Sender: FDA-Public Use
  Company Number: US-009507513-1203USA01479

PATIENT
  Sex: Female
  Weight: 82.99 kg

DRUGS (7)
  1. FOSAMAX [Suspect]
     Indication: OSTEOPENIA
     Dosage: 70 MG, QW
     Route: 048
     Dates: start: 1996, end: 201108
  2. FOSAMAX [Suspect]
     Dosage: 70 MG, QW
     Route: 048
     Dates: start: 20110828
  3. ASCORBIC ACID [Concomitant]
     Dosage: 1000 MG, QD
     Dates: start: 1990
  4. VITAMIN D (UNSPECIFIED) [Concomitant]
     Dosage: 1000MG DAILY
     Dates: start: 1990
  5. VITAMIN E [Concomitant]
     Dosage: 1000 MG, UNK
     Dates: start: 1990
  6. CALCIUM (UNSPECIFIED) [Concomitant]
     Dosage: 1200 MG, QD
     Dates: start: 1990
  7. RED YEAST [Concomitant]
     Dosage: 1200 MG, QD
     Dates: start: 1990

REACTIONS (42)
  - Femur fracture [Recovered/Resolved]
  - Intramedullary rod insertion [Unknown]
  - Device related infection [Recovered/Resolved]
  - Breast cancer [Unknown]
  - Cholecystectomy [Unknown]
  - Impaired healing [Unknown]
  - Radical mastectomy [Unknown]
  - Removal of internal fixation [Recovering/Resolving]
  - Fasciotomy [Recovering/Resolving]
  - Medical device removal [Unknown]
  - Medical device implantation [Unknown]
  - Medical device removal [Unknown]
  - Haemorrhage [Recovering/Resolving]
  - Sepsis [Unknown]
  - Cellulitis [Recovering/Resolving]
  - Fracture nonunion [Unknown]
  - Abscess limb [Recovering/Resolving]
  - Leukocytosis [Unknown]
  - Renal failure acute [Recovering/Resolving]
  - Abscess limb [Recovering/Resolving]
  - Fall [Unknown]
  - Hypotension [Unknown]
  - Hyperlipidaemia [Unknown]
  - Hypertension [Unknown]
  - Hysterectomy [Unknown]
  - Umbilical hernia repair [Unknown]
  - Tonsillectomy [Unknown]
  - Cataract operation [Unknown]
  - Cyst [Unknown]
  - Kyphosis [Unknown]
  - Anaemia of chronic disease [Unknown]
  - Osteoarthritis [Unknown]
  - Gallbladder disorder [Unknown]
  - Osteoarthritis [Unknown]
  - Hypokalaemia [Unknown]
  - Culture wound positive [Recovering/Resolving]
  - Anaemia [Recovering/Resolving]
  - Osteomyelitis chronic [Recovering/Resolving]
  - Device related infection [Unknown]
  - Radiotherapy to breast [Unknown]
  - Osteoarthritis [Unknown]
  - Myositis ossificans [Unknown]
